FAERS Safety Report 16376172 (Version 3)
Quarter: 2019Q2

REPORT INFORMATION
  Report Type: Spontaneous
  Country: CA (occurrence: CA)
  Receive Date: 20190531
  Receipt Date: 20190614
  Transmission Date: 20190711
  Serious: Yes (Other)
  Sender: FDA-Public Use
  Company Number: CA-CELLTRION INC.-2019CA020670

PATIENT

DRUGS (6)
  1. PENTASA [Concomitant]
     Active Substance: MESALAMINE
     Dosage: 4 G, DAILY
     Route: 048
  2. INFLECTRA [Suspect]
     Active Substance: INFLIXIMAB-DYYB
     Dosage: 400 MG/Q 0, 2, 6 WEEKS, THEN EVERY 8 WEEKS
     Route: 042
     Dates: start: 20190311
  3. PENTASA [Concomitant]
     Active Substance: MESALAMINE
     Dosage: 500 MG (8 PILLS OD (1X/DAY)
     Route: 048
  4. IRON [Concomitant]
     Active Substance: IRON
     Dosage: 300 MG OD 1X/DAY
     Route: 048
  5. INFLECTRA [Suspect]
     Active Substance: INFLIXIMAB-DYYB
     Indication: COLITIS ULCERATIVE
     Dosage: 400 MG/Q 0, 2, 6 WEEKS, THEN EVERY 8 WEEKS
     Route: 042
     Dates: start: 20190226
  6. INFLECTRA [Suspect]
     Active Substance: INFLIXIMAB-DYYB
     Dosage: 400 MG/Q 0, 2, 6 WEEKS, THEN EVERY 8 WEEKS
     Route: 042
     Dates: start: 20190410

REACTIONS (7)
  - Chills [Unknown]
  - Diarrhoea haemorrhagic [Recovering/Resolving]
  - Heart rate irregular [Unknown]
  - Viral infection [Recovering/Resolving]
  - Off label use [Unknown]
  - Loss of personal independence in daily activities [Unknown]
  - Feeding disorder [Unknown]

NARRATIVE: CASE EVENT DATE: 20190410
